FAERS Safety Report 8200396-9 (Version None)
Quarter: 2012Q1

REPORT INFORMATION
  Report Type: 
  Country: None (occurrence: None)
  Receive Date: 20120312
  Receipt Date: 20120229
  Transmission Date: 20120608
  Serious: Yes (Hospitalization)
  Sender: FDA-Public Use
  Company Number: BR-US-EMD SERONO, INC.-230323J09BRA

PATIENT
  Sex: Female

DRUGS (3)
  1. TILATIL [Concomitant]
     Indication: PRODUCT USED FOR UNKNOWN INDICATION
     Dates: start: 20091208, end: 20091211
  2. REBIF [Suspect]
     Indication: SECONDARY PROGRESSIVE MULTIPLE SCLEROSIS
     Dates: start: 20071120, end: 20101010
  3. DRAMIN B6 [Concomitant]
     Indication: PRODUCT USED FOR UNKNOWN INDICATION

REACTIONS (10)
  - NAUSEA [None]
  - DENGUE FEVER [None]
  - MULTIPLE SCLEROSIS RELAPSE [None]
  - MATERNAL EXPOSURE DURING PREGNANCY [None]
  - OFF LABEL USE [None]
  - IMMUNODEFICIENCY [None]
  - VISUAL ACUITY REDUCED [None]
  - VOMITING [None]
  - HEADACHE [None]
  - NORMAL NEWBORN [None]
